FAERS Safety Report 9901289 (Version 1)
Quarter: 2014Q1

REPORT INFORMATION
  Report Type: Report from Study
  Country: IT (occurrence: IT)
  Receive Date: 20140217
  Receipt Date: 20140217
  Transmission Date: 20141002
  Serious: Yes (Hospitalization)
  Sender: FDA-Public Use
  Company Number: IT-ROCHE-1349355

PATIENT
  Age: 65 Year
  Sex: Male
  Weight: 74 kg

DRUGS (3)
  1. BEVACIZUMAB [Suspect]
     Indication: SMALL CELL LUNG CANCER
     Dosage: LAST DOSE PRIOR TO SAE: 07/JAN/2014
     Route: 042
     Dates: start: 20131028
  2. ETOPOSIDE [Suspect]
     Indication: SMALL CELL LUNG CANCER
     Dosage: LAST DOSE PRIOR TO SAE: 09/JAN/2014
     Route: 042
     Dates: start: 20131028
  3. CISPLATINO [Suspect]
     Indication: SMALL CELL LUNG CANCER
     Dosage: LAST DOSE PRIOR TO SAE: 09/JAN/2014
     Route: 042
     Dates: start: 20131028

REACTIONS (1)
  - Hypoxic-ischaemic encephalopathy [Recovered/Resolved with Sequelae]
